FAERS Safety Report 5011771-8 (Version None)
Quarter: 2006Q2

REPORT INFORMATION
  Report Type: 
  Country: None (occurrence: None)
  Receive Date: 20060524
  Receipt Date: 20060524
  Transmission Date: 20061013
  Serious: Yes (Hospitalization)
  Sender: FDA-Public Use
  Company Number: None

PATIENT
  Age: 62 Year
  Sex: Male
  Weight: 55.9 kg

DRUGS (15)
  1. SIROLIMUS 1MG [Suspect]
     Indication: RENAL TRANSPLANT
     Dosage: 1MG DAILY PO
     Route: 048
     Dates: start: 20051223, end: 20060319
  2. ASPIRIN [Suspect]
     Indication: CARDIAC DISORDER
     Dosage: 81MG  DAILY PO
     Route: 048
     Dates: start: 19970529, end: 20060319
  3. ASPIRIN [Suspect]
     Indication: PROPHYLAXIS
     Dosage: 81MG  DAILY PO
     Route: 048
     Dates: start: 19970529, end: 20060319
  4. IMIQUIMOD [Concomitant]
  5. ASPIRIN [Concomitant]
  6. ATENOLOL [Concomitant]
  7. ATROPINE 0.025/DIPHENOXYLATE [Concomitant]
  8. HYDROCHLOROTHIAZIDE [Concomitant]
  9. LISINOPRIL [Concomitant]
  10. OMEPRAZOLE [Concomitant]
  11. PANCRELIPASE [Concomitant]
  12. PSYLLIUM [Concomitant]
  13. MYCOPHENOLATE MOFETIL [Concomitant]
  14. POTASSIUM CHLORIDE [Concomitant]
  15. SIMVASTATIN [Concomitant]

REACTIONS (3)
  - BLOOD PRESSURE INADEQUATELY CONTROLLED [None]
  - EPISTAXIS [None]
  - HAEMORRHAGE [None]
